FAERS Safety Report 8672839 (Version 3)
Quarter: 2012Q4

REPORT INFORMATION
  Report Type: 
  Country: FR (occurrence: FR)
  Receive Date: 20120719
  Receipt Date: 20121001
  Transmission Date: 20130627
  Serious: Yes (Hospitalization, Other)
  Sender: FDA-Public Use
  Company Number: FR-009507513-2012SP036861

PATIENT
  Age: 54 Year
  Sex: Female
  Weight: 95 kg

DRUGS (8)
  1. BOCEPREVIR [Suspect]
     Indication: HEPATITIS C
     Dosage: UNK UNK, TID
     Dates: start: 20120618, end: 20120711
  2. PEGASYS [Suspect]
     Indication: HEPATITIS C
     Dosage: 180 ?g, QW
     Dates: start: 20120514, end: 20120711
  3. COPEGUS [Suspect]
     Indication: HEPATITIS C
     Dosage: 600 mg, BID
     Dates: start: 20120514, end: 20120711
  4. INSULIN ASPART, BIPHASIC ISOPHANE [INJECTION] [Concomitant]
     Indication: DIABETES MELLITUS
     Dosage: 32 IU, bid
     Dates: start: 20120529
  5. LASILIX [Concomitant]
     Indication: HEPATIC CIRRHOSIS
     Dosage: 40 mg, QD
     Dates: start: 2008
  6. ALDACTONE TABLETS [Concomitant]
     Indication: HEPATIC CIRRHOSIS
     Dosage: 75 mg, QD
     Dates: start: 2008
  7. QUININE [Concomitant]
     Indication: MUSCLE SPASMS
     Dosage: UNK UNK, TID
     Dates: start: 201206
  8. KALEORID [Concomitant]
     Indication: HEPATIC CIRRHOSIS
     Dosage: 1000
     Dates: start: 2008

REACTIONS (5)
  - Condition aggravated [Recovered/Resolved]
  - Pyrexia [Recovered/Resolved]
  - Hepatic pain [Recovered/Resolved]
  - Cholelithiasis [Recovered/Resolved]
  - Neutropenia [Recovered/Resolved]
